FAERS Safety Report 17193646 (Version 1)
Quarter: 2019Q4

REPORT INFORMATION
  Report Type: Spontaneous
  Country: JP (occurrence: JP)
  Receive Date: 20191223
  Receipt Date: 20191223
  Transmission Date: 20200122
  Serious: Yes (Other)
  Sender: FDA-Public Use
  Company Number: JP-ALLERGAN-1952347US

PATIENT
  Sex: Male

DRUGS (2)
  1. ASENAPINE MALEATE - BP [Suspect]
     Active Substance: ASENAPINE MALEATE
     Indication: SCHIZOPHRENIA
     Dosage: 5 MG, BID
     Route: 060
     Dates: start: 20191122, end: 20191206
  2. BLONANSERIN [Concomitant]
     Active Substance: BLONANSERIN
     Dosage: UNK

REACTIONS (3)
  - Urinary retention [Recovering/Resolving]
  - Polydipsia [Recovering/Resolving]
  - Thirst [Recovering/Resolving]

NARRATIVE: CASE EVENT DATE: 2019
